FAERS Safety Report 12589324 (Version 1)
Quarter: 2016Q3

REPORT INFORMATION
  Report Type: Spontaneous
  Country: US (occurrence: US)
  Receive Date: 20160725
  Receipt Date: 20160725
  Transmission Date: 20161109
  Serious: No
  Sender: FDA-Public Use
  Company Number: US-JNJFOC-20160700316

PATIENT
  Age: 52 Year
  Sex: Female
  Weight: 74.84 kg

DRUGS (4)
  1. VISINE ORIGINAL REDNESS RELIEF [Concomitant]
     Active Substance: TETRAHYDROZOLINE HYDROCHLORIDE
     Indication: PRODUCT USED FOR UNKNOWN INDICATION
     Route: 047
  2. FLAXSEED [Concomitant]
     Active Substance: FLAX SEED
     Indication: HOT FLUSH
     Dosage: 1/2 TBSP
     Route: 065
  3. VISINE A [Suspect]
     Active Substance: NAPHAZOLINE HYDROCHLORIDE\PHENIRAMINE MALEATE
     Indication: HYPERSENSITIVITY
     Dosage: 1 DROPS TWICE IN THE MORNING
     Route: 047
     Dates: start: 20160629
  4. BENADRYL [Concomitant]
     Active Substance: DIPHENHYDRAMINE HYDROCHLORIDE
     Indication: HYPERSENSITIVITY
     Route: 048
     Dates: start: 20160628

REACTIONS (3)
  - Off label use [Not Recovered/Not Resolved]
  - Mydriasis [Not Recovered/Not Resolved]
  - Product use issue [Not Recovered/Not Resolved]

NARRATIVE: CASE EVENT DATE: 20160629
